FAERS Safety Report 6180630-X (Version None)
Quarter: 2009Q2

REPORT INFORMATION
  Report Type: 
  Country: None (occurrence: None)
  Receive Date: 20090506
  Receipt Date: 20090422
  Transmission Date: 20091009
  Serious: Yes (Other)
  Sender: FDA-Public Use
  Company Number: PHHY2009BR15508

PATIENT
  Sex: Female
  Weight: 56 kg

DRUGS (3)
  1. DIOVAN [Suspect]
     Indication: HYPERTENSION
     Dosage: 80 MG, UNK
     Route: 048
  2. PURAN T4 [Concomitant]
     Indication: THYROID DISORDER
     Dosage: 1 TABLET AND A HALF DAILY
     Route: 048
  3. OMEPRAZOLE [Concomitant]
     Dosage: 2 CAPSULES DAILY (MORNING AND NIGHT)
     Route: 048

REACTIONS (2)
  - BLOOD PRESSURE INADEQUATELY CONTROLLED [None]
  - BLOOD SODIUM DECREASED [None]
